FAERS Safety Report 20684991 (Version 1)
Quarter: 2022Q2

REPORT INFORMATION
  Report Type: Spontaneous
  Country: US (occurrence: US)
  Receive Date: 20220407
  Receipt Date: 20220407
  Transmission Date: 20220720
  Serious: No
  Sender: FDA-Public Use
  Company Number: US-PFIZER INC-202101035602

PATIENT
  Age: 48 Year
  Sex: Male

DRUGS (1)
  1. INLYTA [Suspect]
     Active Substance: AXITINIB
     Dosage: 5 MG
     Dates: start: 20200825

REACTIONS (6)
  - COVID-19 [Unknown]
  - Ageusia [Recovering/Resolving]
  - Anosmia [Recovering/Resolving]
  - Dry skin [Recovering/Resolving]
  - Vertigo [Unknown]
  - Skin fissures [Recovering/Resolving]
